FAERS Safety Report 12947172 (Version 1)
Quarter: 2016Q4

REPORT INFORMATION
  Report Type: Spontaneous
  Country: US (occurrence: US)
  Receive Date: 20161116
  Receipt Date: 20161116
  Transmission Date: 20170207
  Serious: No
  Sender: FDA-Public Use
  Company Number: None

PATIENT
  Age: 85 Year
  Sex: Female
  Weight: 61.24 kg

DRUGS (6)
  1. CITRACAL SLOW RELEASE [Concomitant]
  2. COZAAR [Concomitant]
     Active Substance: LOSARTAN POTASSIUM
  3. PROTOPIC [Suspect]
     Active Substance: TACROLIMUS
     Indication: ECZEMA
     Dosage: SMALL AMOUNT RUB ON SKIN - TOPICAL - BID
     Route: 061
     Dates: start: 20160229, end: 20160318
  4. CALCIUM [Concomitant]
     Active Substance: CALCIUM
  5. MULTIVITAMIN [Concomitant]
     Active Substance: VITAMINS
  6. ASPIRIN. [Concomitant]
     Active Substance: ASPIRIN

REACTIONS (6)
  - Haemorrhoids [None]
  - Drug hypersensitivity [None]
  - Skin irritation [None]
  - Pain [None]
  - Skin burning sensation [None]
  - Rectal haemorrhage [None]

NARRATIVE: CASE EVENT DATE: 20160303
